FAERS Safety Report 15143110 (Version 1)
Quarter: 2018Q3

REPORT INFORMATION
  Report Type: Spontaneous
  Country: ES (occurrence: ES)
  Receive Date: 20180713
  Receipt Date: 20180713
  Transmission Date: 20181010
  Serious: Yes (Hospitalization, Other)
  Sender: FDA-Public Use
  Company Number: PHHY2018ES040153

PATIENT
  Age: 81 Year
  Sex: Male

DRUGS (4)
  1. LODIPRES (AMLODIPINE BESYLATE) [Interacting]
     Active Substance: AMLODIPINE BESYLATE
     Indication: PRODUCT USED FOR UNKNOWN INDICATION
     Route: 065
  2. DILUTOL (TORASEMIDE) [Interacting]
     Active Substance: TORSEMIDE
     Indication: PRODUCT USED FOR UNKNOWN INDICATION
     Route: 065
  3. CEFIXIME. [Suspect]
     Active Substance: CEFIXIME
     Indication: URINARY TRACT INFECTION
     Dosage: 400 MG, UNK
     Route: 065
  4. KARVEZIDE [Interacting]
     Active Substance: HYDROCHLOROTHIAZIDE\IRBESARTAN
     Indication: PRODUCT USED FOR UNKNOWN INDICATION
     Dosage: 300MG/25MG
     Route: 065

REACTIONS (2)
  - Blood sodium decreased [Unknown]
  - Drug interaction [Unknown]
